FAERS Safety Report 7794418-7 (Version None)
Quarter: 2011Q4

REPORT INFORMATION
  Report Type: 
  Country: None (occurrence: None)
  Receive Date: 20111004
  Receipt Date: 20111004
  Transmission Date: 20120403
  Serious: Yes (Hospitalization)
  Sender: FDA-Public Use
  Company Number: None

PATIENT
  Age: 62 Year
  Sex: Female
  Weight: 52.163 kg

DRUGS (2)
  1. PROPOFOL [Suspect]
     Indication: COLONOSCOPY
     Dates: start: 20110926, end: 20110926
  2. PROPOFOL [Suspect]
     Indication: SEDATIVE THERAPY
     Dates: start: 20110926, end: 20110926

REACTIONS (3)
  - TEARFULNESS [None]
  - PARAESTHESIA [None]
  - MEMORY IMPAIRMENT [None]
